FAERS Safety Report 17904505 (Version 6)
Quarter: 2020Q4

REPORT INFORMATION
  Report Type: Report from Study
  Country: US (occurrence: US)
  Receive Date: 20200617
  Receipt Date: 20201207
  Transmission Date: 20210113
  Serious: Yes (Hospitalization, Other)
  Sender: FDA-Public Use
  Company Number: NVSC2020US169053

PATIENT
  Age: 27 Year
  Sex: Female

DRUGS (2)
  1. COSENTYX [Suspect]
     Active Substance: SECUKINUMAB
     Indication: PSORIATIC ARTHROPATHY
     Dosage: 300 MG, QW
     Route: 058
     Dates: start: 202005
  2. COSENTYX [Suspect]
     Active Substance: SECUKINUMAB
     Indication: PSORIASIS
     Dosage: 300 MG, UNKNOWN (UNDER THE TONGUE)
     Route: 060

REACTIONS (9)
  - Arthralgia [Unknown]
  - Incorrect route of product administration [Unknown]
  - Infection [Recovered/Resolved]
  - Weight decreased [Recovered/Resolved]
  - Psoriasis [Unknown]
  - Product dose omission issue [Unknown]
  - Depression [Unknown]
  - Nephrolithiasis [Unknown]
  - Illness [Unknown]

NARRATIVE: CASE EVENT DATE: 202005
